FAERS Safety Report 9222382 (Version 4)
Quarter: 2014Q2

REPORT INFORMATION
  Report Type: Spontaneous
  Country: US (occurrence: US)
  Receive Date: 20130410
  Receipt Date: 20140522
  Transmission Date: 20141212
  Serious: No
  Sender: FDA-Public Use
  Company Number: US-009507513-1304USA003856

PATIENT
  Sex: Male

DRUGS (1)
  1. PROPECIA [Suspect]
     Indication: ANDROGENETIC ALOPECIA
     Dosage: 1 MG, UNK
     Route: 048
     Dates: start: 200305, end: 200403

REACTIONS (10)
  - Cognitive disorder [Not Recovered/Not Resolved]
  - Sexual dysfunction [Not Recovered/Not Resolved]
  - Depression [Not Recovered/Not Resolved]
  - Drug hypersensitivity [Unknown]
  - Osteoarthritis [Unknown]
  - Asthma [Unknown]
  - Hyperlipidaemia [Unknown]
  - Carpal tunnel syndrome [Unknown]
  - Hypogonadism [Unknown]
  - Erectile dysfunction [Unknown]
